FAERS Safety Report 24380013 (Version 3)
Quarter: 2025Q1

REPORT INFORMATION
  Report Type: Report from Study
  Country: US (occurrence: US)
  Receive Date: 20240930
  Receipt Date: 20250224
  Transmission Date: 20250409
  Serious: No
  Sender: SUNOVION
  Company Number: US-SUMITOMO PHARMA SWITZERLAND GMBH-2024SPA003132

PATIENT

DRUGS (11)
  1. ORGOVYX [Suspect]
     Active Substance: RELUGOLIX
     Indication: Prostate cancer
     Dosage: 360 MG, SINGLE
     Route: 048
  2. ORGOVYX [Suspect]
     Active Substance: RELUGOLIX
     Dosage: 120 MG, QD
     Route: 048
  3. AMLODIPINE [Concomitant]
     Active Substance: AMLODIPINE BESYLATE
     Route: 065
  4. CEPHALEXIN [Concomitant]
     Active Substance: CEPHALEXIN
     Route: 065
  5. ELIQUIS [Concomitant]
     Active Substance: APIXABAN
     Route: 065
  6. VITAMINS [Concomitant]
     Active Substance: VITAMINS
     Route: 065
  7. MYRBETRIQ [Concomitant]
     Active Substance: MIRABEGRON
  8. NUBEQA [Concomitant]
     Active Substance: DAROLUTAMIDE
     Route: 065
  9. ONDANSETRON [Concomitant]
     Active Substance: ONDANSETRON
     Route: 065
  10. VITAMIN B12 [Concomitant]
     Active Substance: CYANOCOBALAMIN
     Route: 065
  11. ZOMETA [Concomitant]
     Active Substance: ZOLEDRONIC ACID
     Route: 065

REACTIONS (2)
  - Cystitis [Unknown]
  - Product dose omission issue [Unknown]
